FAERS Safety Report 4612633-8 (Version None)
Quarter: 2005Q1

REPORT INFORMATION
  Report Type: 
  Country: None (occurrence: None)
  Receive Date: 20050316
  Receipt Date: 20050307
  Transmission Date: 20050727
  Serious: Yes (Other)
  Sender: FDA-Public Use
  Company Number: 212536

PATIENT
  Age: 66 Year
  Sex: Male

DRUGS (2)
  1. XOLAIR [Suspect]
     Indication: ASTHMA
     Dosage: 375 MG, Q2W
     Dates: start: 20031001, end: 20050201
  2. MEDROL [Concomitant]

REACTIONS (11)
  - CHILLS [None]
  - DIPLOPIA [None]
  - EOSINOPHIL PERCENTAGE INCREASED [None]
  - FACIAL PALSY [None]
  - NEUTROPHIL COUNT DECREASED [None]
  - PAIN [None]
  - PAIN IN EXTREMITY [None]
  - PYREXIA [None]
  - TREMOR [None]
  - VIRAL INFECTION [None]
  - VITH NERVE PARALYSIS [None]
